FAERS Safety Report 9448812 (Version 1)
Quarter: 2013Q3

REPORT INFORMATION
  Report Type: Spontaneous
  Country: US (occurrence: US)
  Receive Date: 20130808
  Receipt Date: 20130808
  Transmission Date: 20140515
  Serious: Yes (Other)
  Sender: FDA-Public Use
  Company Number: US-BAYER-2013-095798

PATIENT
  Sex: Female

DRUGS (7)
  1. YASMIN [Suspect]
  2. NEXIUM [Concomitant]
  3. GLYCOLAX [Concomitant]
  4. MELOXICAM [Concomitant]
  5. PROPOXYPHENE NAPSYLATE [Concomitant]
  6. TRAMADOL [Concomitant]
  7. MAXZIDE [Concomitant]

REACTIONS (1)
  - Myocardial infarction [None]
